FAERS Safety Report 8330391-0 (Version None)
Quarter: 2012Q2

REPORT INFORMATION
  Report Type: 
  Country: None (occurrence: None)
  Receive Date: 20120502
  Receipt Date: 20120419
  Transmission Date: 20120825
  Serious: No
  Sender: FDA-Public Use
  Company Number: US-AMGEN-USASP2012008967

PATIENT
  Age: 43 Year
  Sex: Female
  Weight: 13.605 kg

DRUGS (1)
  1. ENBREL [Suspect]
     Indication: PSORIASIS
     Dosage: 50 MG, QWK
     Route: 058
     Dates: start: 20080208

REACTIONS (3)
  - JOINT DISLOCATION [None]
  - INJECTION SITE PAIN [None]
  - INJECTION SITE REACTION [None]
